FAERS Safety Report 17650741 (Version 1)
Quarter: 2020Q2

REPORT INFORMATION
  Report Type: Spontaneous
  Country: US (occurrence: US)
  Receive Date: 20200408
  Receipt Date: 20200408
  Transmission Date: 20200713
  Serious: No
  Sender: FDA-Public Use
  Company Number: None

PATIENT
  Age: 74 Year
  Sex: Female

DRUGS (1)
  1. EVENITY [Suspect]
     Active Substance: ROMOSOZUMAB-AQQG
     Dosage: ?          OTHER DOSE:105 DF;OTHER FREQUENCY:OTHER;?
     Route: 058
     Dates: start: 2019

REACTIONS (1)
  - Injection site pain [None]

NARRATIVE: CASE EVENT DATE: 20200408
